FAERS Safety Report 9492364 (Version 2)
Quarter: 2013Q3

REPORT INFORMATION
  Report Type: Spontaneous
  Country: JP (occurrence: JP)
  Receive Date: 20130830
  Receipt Date: 20130910
  Transmission Date: 20140515
  Serious: Yes (Other)
  Sender: FDA-Public Use
  Company Number: JP-PFIZER INC-2013249791

PATIENT
  Age: 54 Year
  Sex: Female

DRUGS (2)
  1. ADRIACIN [Suspect]
     Indication: BREAST CANCER
     Dosage: UNK
     Dates: start: 200911
  2. CYCLOPHOSPHAMIDE HYDRATE [Concomitant]
     Indication: BREAST CANCER
     Dosage: UNK
     Dates: start: 200911

REACTIONS (2)
  - Second primary malignancy [Recovering/Resolving]
  - Acute promyelocytic leukaemia [Recovering/Resolving]
